FAERS Safety Report 15125216 (Version 1)
Quarter: 2018Q3

REPORT INFORMATION
  Report Type: Spontaneous
  Country: US (occurrence: US)
  Receive Date: 20180710
  Receipt Date: 20180710
  Transmission Date: 20181010
  Serious: No
  Sender: FDA-Public Use
  Company Number: US-009507513-1806USA004864

PATIENT
  Age: 75 Year
  Sex: Male

DRUGS (2)
  1. LOSARTAN POTASSIUM. [Suspect]
     Active Substance: LOSARTAN POTASSIUM
     Indication: HYPERTENSION
     Dosage: SPLIT THE 25MG TABLET ON THE FIRST DOSE
     Route: 048
  2. LOSARTAN POTASSIUM. [Suspect]
     Active Substance: LOSARTAN POTASSIUM
     Dosage: 25 MG, WHOLE TABLET
     Route: 048

REACTIONS (3)
  - Incorrect dose administered [Unknown]
  - Drug effect incomplete [Recovered/Resolved]
  - Wrong technique in product usage process [Unknown]
